FAERS Safety Report 10009875 (Version 2)
Quarter: 2014Q1

REPORT INFORMATION
  Report Type: Spontaneous
  Country: US (occurrence: US)
  Receive Date: 20140312
  Receipt Date: 20140312
  Transmission Date: 20141002
  Serious: No
  Sender: FDA-Public Use
  Company Number: US-INCYTE CORPORATION-2013IN000226

PATIENT
  Age: 63 Year
  Sex: Female

DRUGS (3)
  1. JAKAFI [Suspect]
     Indication: MYELOFIBROSIS
     Dosage: 10 MG, BID
     Route: 048
     Dates: start: 20121227, end: 2013
  2. JAKAFI [Suspect]
     Dosage: 10 MG, QD (TUESDAY, THURSDAY + FRIDAY) + 10 MG, BID (ON OTHER DAYS OF THE WEEK)
     Route: 048
     Dates: start: 2013
  3. JAKAFI [Suspect]
     Dosage: 5 MG, BID
     Route: 048
     Dates: start: 20121123

REACTIONS (7)
  - Salivary hypersecretion [Unknown]
  - Sinus disorder [Unknown]
  - Urine odour abnormal [Unknown]
  - Headache [Unknown]
  - Platelet count decreased [Unknown]
  - Contusion [Unknown]
  - Blood count abnormal [Unknown]
